FAERS Safety Report 7007879-8 (Version None)
Quarter: 2010Q3

REPORT INFORMATION
  Report Type: 
  Country: None (occurrence: None)
  Receive Date: 20100922
  Receipt Date: 20100915
  Transmission Date: 20110219
  Serious: Yes (Life-Threatening)
  Sender: FDA-Public Use
  Company Number: US-BAYER-201033849NA

PATIENT
  Sex: Female

DRUGS (2)
  1. AVELOX [Suspect]
     Indication: PRODUCT USED FOR UNKNOWN INDICATION
     Dosage: UNIT DOSE: 400 MG
     Route: 048
     Dates: start: 20100901, end: 20100901
  2. AVELOX [Suspect]
     Dosage: UNIT DOSE: 400 MG
     Route: 048
     Dates: start: 20100901, end: 20100901

REACTIONS (8)
  - ANGIOEDEMA [None]
  - COUGH [None]
  - DIARRHOEA [None]
  - DYSPNOEA [None]
  - HYPERSENSITIVITY [None]
  - LIP SWELLING [None]
  - SWELLING FACE [None]
  - VOMITING [None]
